FAERS Safety Report 25405977 (Version 1)
Quarter: 2025Q2

REPORT INFORMATION
  Report Type: Spontaneous
  Country: US (occurrence: None)
  Receive Date: 20250606
  Receipt Date: 20250606
  Transmission Date: 20250717
  Serious: Yes (Death)
  Sender: FDA-CTU
  Company Number: None

PATIENT
  Age: 68 Year
  Sex: Male
  Weight: 78.2 kg

DRUGS (6)
  1. XELODA [Suspect]
     Active Substance: CAPECITABINE
  2. ELOXATIN [Suspect]
     Active Substance: OXALIPLATIN
  3. JARDIANCE [Concomitant]
     Active Substance: EMPAGLIFLOZIN
  4. METOPROLOL [Concomitant]
     Active Substance: METOPROLOL
  5. MEXILETINE [Concomitant]
     Active Substance: MEXILETINE
  6. SOTALOL [Concomitant]
     Active Substance: SOTALOL

REACTIONS (1)
  - Death [None]

NARRATIVE: CASE EVENT DATE: 20250525
